FAERS Safety Report 15533911 (Version 1)
Quarter: 2018Q4

REPORT INFORMATION
  Report Type: Spontaneous
  Country: SE (occurrence: SE)
  Receive Date: 20181019
  Receipt Date: 20181019
  Transmission Date: 20190205
  Serious: Yes (Life-Threatening)
  Sender: FDA-Public Use
  Company Number: SE-BAXTER-2018BAX025552

PATIENT
  Age: 34 Year
  Sex: Female

DRUGS (2)
  1. NATRIUMKLORID BAXTER 9 MG/ML INFUSIONSV?TSKA, L?SNING [Suspect]
     Active Substance: SODIUM CHLORIDE
     Indication: IRON DEFICIENCY ANAEMIA
     Dosage: ORDERED DOSE 100 ML. ONSET OF THE REACTION AFTER CA. 30 DROPS.
     Route: 042
     Dates: start: 20180920, end: 20180920
  2. MONOFER [Suspect]
     Active Substance: IRON ISOMALTOSIDE 1000
     Indication: IRON DEFICIENCY ANAEMIA
     Dosage: ORDERED DOSE 100 ML. ONSET OF THE REACTION AFTER CA. 30 DROPS.
     Route: 042
     Dates: start: 20180920, end: 20180920

REACTIONS (1)
  - Anaphylactic reaction [Recovered/Resolved]

NARRATIVE: CASE EVENT DATE: 20180920
